FAERS Safety Report 21650160 (Version 2)
Quarter: 2022Q4

REPORT INFORMATION
  Report Type: Spontaneous
  Country: FR (occurrence: FR)
  Receive Date: 20221128
  Receipt Date: 20221228
  Transmission Date: 20230113
  Serious: Yes (Hospitalization)
  Sender: FDA-Public Use
  Company Number: None

PATIENT
  Age: 42 Year
  Sex: Female

DRUGS (3)
  1. KEYTRUDA [Suspect]
     Active Substance: PEMBROLIZUMAB
     Indication: Triple negative breast cancer
     Dosage: 200 MILLIGRAM, Q3W
     Route: 042
     Dates: start: 20220720
  2. EPIRUBICIN [Suspect]
     Active Substance: EPIRUBICIN
     Indication: Triple negative breast cancer
     Dosage: 1 DOSAGE FORM
     Route: 042
     Dates: start: 20221010
  3. CYCLOPHOSPHAMIDE [Suspect]
     Active Substance: CYCLOPHOSPHAMIDE
     Indication: Triple negative breast cancer
     Dosage: 1 DOSAGE FORM
     Route: 042
     Dates: start: 20221010

REACTIONS (2)
  - Febrile bone marrow aplasia [Recovered/Resolved]
  - Thrombocytopenia [Recovered/Resolved]

NARRATIVE: CASE EVENT DATE: 20221017
